FAERS Safety Report 14566848 (Version 4)
Quarter: 2018Q2

REPORT INFORMATION
  Report Type: Spontaneous
  Country: JP (occurrence: JP)
  Receive Date: 20180223
  Receipt Date: 20180410
  Transmission Date: 20180711
  Serious: Yes (Death)
  Sender: FDA-Public Use
  Company Number: JP-BEH-2018088206

PATIENT
  Age: 70 Year
  Sex: Male
  Weight: 75 kg

DRUGS (6)
  1. WARFARIN [Concomitant]
     Active Substance: WARFARIN
     Indication: ATRIAL FIBRILLATION
     Dosage: 5 MG, UNK
     Route: 048
     Dates: start: 2018, end: 20180215
  2. SOLYUGEN [Concomitant]
     Indication: DEHYDRATION
     Dosage: 500 ML, UNK
     Route: 042
     Dates: start: 20180216
  3. KCENTRA [Suspect]
     Active Substance: COAGULATION FACTOR IX HUMAN\COAGULATION FACTOR VII HUMAN\COAGULATION FACTOR X HUMAN\PROTEIN C\PROTEIN S HUMAN\PROTHROMBIN
     Indication: HAEMATOMA
     Dosage: 2620 IU, UNK
     Route: 042
     Dates: start: 20180215, end: 20180215
  4. GLYCERIN                           /00200601/ [Concomitant]
     Active Substance: GLYCERIN
     Indication: BRAIN OEDEMA
     Dosage: 200 ML, UNK
     Route: 042
     Dates: start: 20180216
  5. KCENTRA [Suspect]
     Active Substance: COAGULATION FACTOR IX HUMAN\COAGULATION FACTOR VII HUMAN\COAGULATION FACTOR X HUMAN\PROTEIN C\PROTEIN S HUMAN\PROTHROMBIN
     Indication: HAEMORRHAGIC DIATHESIS
  6. MENATETRENONE [Concomitant]
     Active Substance: MENATETRENONE
     Dosage: 10 MG, UNK
     Route: 042
     Dates: end: 20180215

REACTIONS (1)
  - Cerebral haemorrhage [Fatal]

NARRATIVE: CASE EVENT DATE: 20180215
